FAERS Safety Report 9382095 (Version 1)
Quarter: 2013Q3

REPORT INFORMATION
  Report Type: Spontaneous
  Country: DE (occurrence: DE)
  Receive Date: 20130703
  Receipt Date: 20130703
  Transmission Date: 20140515
  Serious: Yes (Hospitalization)
  Sender: FDA-Public Use
  Company Number: DE-AMGEN-DEUSP2013044853

PATIENT
  Age: 77 Year
  Sex: Female
  Weight: 91 kg

DRUGS (4)
  1. PEGFILGRASTIM [Suspect]
     Indication: PRODUCT USED FOR UNKNOWN INDICATION
     Dosage: UNK
     Route: 065
  2. TOPOTECAN [Suspect]
     Dosage: 1.93 MG, DAILY
     Route: 042
     Dates: start: 20130603, end: 20130608
  3. SORAFENIB [Suspect]
     Dosage: 400 MG, DAILY
     Route: 048
     Dates: start: 20130609, end: 20130610
  4. CLEXANE [Concomitant]
     Indication: EMBOLISM
     Dosage: 0.8 ML, DAILY
     Route: 058
     Dates: start: 20130610

REACTIONS (3)
  - Embolism [Recovered/Resolved]
  - Dyspnoea [Unknown]
  - Pain in extremity [Unknown]
